FAERS Safety Report 8018115-8 (Version None)
Quarter: 2012Q1

REPORT INFORMATION
  Report Type: 
  Country: None (occurrence: None)
  Receive Date: 20120103
  Receipt Date: 20111222
  Transmission Date: 20120608
  Serious: Yes (Other)
  Sender: FDA-Public Use
  Company Number: JP-ELI_LILLY_AND_COMPANY-JP201112003970

PATIENT
  Sex: Female

DRUGS (11)
  1. FORTEO [Suspect]
     Indication: OSTEOPOROSIS
     Dosage: 20 UG, UNK
     Route: 058
     Dates: start: 20111116, end: 20111210
  2. KETOPROFEN [Concomitant]
     Indication: BACK PAIN
     Dosage: 40 MG, UNK
     Route: 062
  3. SELTEPNON [Concomitant]
  4. BUFFERIN [Concomitant]
  5. ISOSORBIDE MONONITRATE [Concomitant]
  6. SIGMART [Concomitant]
  7. MUCOSTA [Concomitant]
     Indication: PROPHYLAXIS
     Dosage: 300 MG, UNK
     Route: 048
     Dates: start: 20110801
  8. LIPITOR [Concomitant]
  9. LOBU [Concomitant]
     Indication: BACK PAIN
     Dosage: 180 MG, UNK
     Route: 048
     Dates: start: 20110801
  10. CONIEL [Concomitant]
  11. MYORELARK [Concomitant]
     Indication: BACK PAIN
     Dosage: 150 MG, UNK
     Route: 048
     Dates: start: 20110801

REACTIONS (1)
  - ANGINA PECTORIS [None]
